FAERS Safety Report 9064399 (Version 2)
Quarter: 2013Q3

REPORT INFORMATION
  Report Type: Spontaneous
  Country: US (occurrence: US)
  Receive Date: 20130213
  Receipt Date: 20130722
  Transmission Date: 20140515
  Serious: Yes (Hospitalization)
  Sender: FDA-Public Use
  Company Number: US-FRI-1000042551

PATIENT
  Age: 68 Year
  Sex: Male

DRUGS (14)
  1. BYSTOLIC [Suspect]
     Dosage: 20 MG
     Route: 048
  2. SUTENT [Suspect]
     Indication: PROSTATE CANCER
     Dosage: 37.5 MG
     Route: 048
     Dates: start: 20120227, end: 20120422
  3. SUTENT [Suspect]
     Dosage: 37.5 MG
     Route: 048
     Dates: start: 2012
  4. ABIRATERONE ACETATE [Suspect]
     Indication: PROSTATE CANCER
     Dosage: 1000 MG
     Route: 048
     Dates: start: 20110603
  5. BENICAR [Suspect]
     Dosage: 20 MG
     Route: 048
  6. LIPITOR [Suspect]
     Route: 048
  7. ASPIRIN [Suspect]
     Dosage: 81 MG
     Route: 048
  8. GLYBURIDE [Suspect]
     Dosage: 20 MG
     Route: 048
  9. IMDUR [Suspect]
     Dosage: 30 MG
     Route: 048
  10. METHADONE HYDROCHLORIDE [Suspect]
     Dosage: 15 MG
     Route: 048
     Dates: start: 20110307
  11. NITROGLYCERIN [Suspect]
     Route: 060
  12. PREDNISONE [Suspect]
     Indication: PROSTATE CANCER
     Dosage: 5 MG
     Route: 048
  13. NUCYNTA [Suspect]
     Dosage: 450 MG
     Route: 048
  14. SENNA [Suspect]
     Dosage: 2 TABLETS
     Route: 048

REACTIONS (4)
  - Mental status changes [Not Recovered/Not Resolved]
  - Chest pain [Unknown]
  - Dyspnoea [Recovered/Resolved]
  - Muscular weakness [Recovered/Resolved]
